FAERS Safety Report 9713016 (Version 1)
Quarter: 2013Q4

REPORT INFORMATION
  Report Type: Spontaneous
  Country: US (occurrence: US)
  Receive Date: 20131126
  Receipt Date: 20131126
  Transmission Date: 20140711
  Serious: No
  Sender: FDA-Public Use
  Company Number: US-BAYER-2013-133814

PATIENT
  Age: 66 Year
  Sex: Male

DRUGS (1)
  1. NEXAVAR [Suspect]
     Dosage: 1 PILL A DAY
     Dates: start: 20131027, end: 20131030

REACTIONS (3)
  - Dry skin [None]
  - Headache [None]
  - Pain [None]
